FAERS Safety Report 22075197 (Version 3)
Quarter: 2023Q1

REPORT INFORMATION
  Report Type: Spontaneous
  Country: US (occurrence: US)
  Receive Date: 20230308
  Receipt Date: 20230318
  Transmission Date: 20230417
  Serious: Yes (Other)
  Sender: FDA-Public Use
  Company Number: US-ABBVIE-4328439

PATIENT
  Sex: Female

DRUGS (1)
  1. LUPRON [Suspect]
     Active Substance: LEUPROLIDE ACETATE
     Indication: Pancreatic disorder
     Route: 065

REACTIONS (11)
  - Blindness [Unknown]
  - Ligament disorder [Unknown]
  - Alopecia [Unknown]
  - Pneumonia [Unknown]
  - Surgery [Unknown]
  - Hypoacusis [Unknown]
  - Neuropathy peripheral [Unknown]
  - Tooth loss [Unknown]
  - Injection site pain [Unknown]
  - Post procedural complication [Unknown]
  - Venous thrombosis [Unknown]
